FAERS Safety Report 11386051 (Version 1)
Quarter: 2015Q3

REPORT INFORMATION
  Report Type: Spontaneous
  Country: US (occurrence: US)
  Receive Date: 20150817
  Receipt Date: 20150817
  Transmission Date: 20151125
  Serious: Yes (Hospitalization)
  Sender: FDA-Public Use
  Company Number: US-JNJFOC-20150805858

PATIENT
  Age: 84 Year
  Sex: Male

DRUGS (2)
  1. ZYTIGA [Suspect]
     Active Substance: ABIRATERONE ACETATE
     Indication: PROSTATE CANCER
     Route: 048
     Dates: start: 201411
  2. PREDNISONE. [Concomitant]
     Active Substance: PREDNISONE
     Indication: PROSTATE CANCER
     Route: 048

REACTIONS (6)
  - Dehydration [Unknown]
  - Streptococcal bacteraemia [Unknown]
  - Catheter site haemorrhage [Not Recovered/Not Resolved]
  - Hypotension [Unknown]
  - Weight fluctuation [Unknown]
  - Fluid retention [Not Recovered/Not Resolved]

NARRATIVE: CASE EVENT DATE: 201508
